FAERS Safety Report 8802680 (Version 1)
Quarter: 2012Q4

REPORT INFORMATION
  Report Type: 
  Country: US (occurrence: US)
  Receive Date: 20120921
  Receipt Date: 20120921
  Transmission Date: 20130627
  Serious: No
  Sender: FDA-Public Use
  Company Number: US-PFIZER INC-2012234003

PATIENT
  Sex: Female

DRUGS (2)
  1. XANAX [Suspect]
     Dosage: UNK
     Dates: end: 2008
  2. XANAX [Suspect]
     Dosage: UNK, as needed
     Dates: start: 2009

REACTIONS (5)
  - Tinnitus [Unknown]
  - Paraesthesia [Unknown]
  - Abdominal pain [Unknown]
  - Migraine [Unknown]
  - Withdrawal syndrome [Unknown]
